FAERS Safety Report 15682786 (Version 1)
Quarter: 2018Q4

REPORT INFORMATION
  Report Type: Spontaneous
  Country: FR (occurrence: FR)
  Receive Date: 20181203
  Receipt Date: 20181203
  Transmission Date: 20190205
  Serious: Yes (Other)
  Sender: FDA-Public Use
  Company Number: FR-BAYER-2018-219115

PATIENT
  Age: 65 Year
  Sex: Male

DRUGS (1)
  1. NEXAVAR [Suspect]
     Active Substance: SORAFENIB
     Indication: HEPATOCELLULAR CARCINOMA
     Dosage: 1 DF, BID
     Dates: start: 201808

REACTIONS (5)
  - Rectal haemorrhage [None]
  - Haemorrhoids [None]
  - Asthenia [None]
  - Off label use [None]
  - Diarrhoea [None]
